FAERS Safety Report 11629897 (Version 3)
Quarter: 2016Q1

REPORT INFORMATION
  Report Type: Report from Study
  Country: JP (occurrence: JP)
  Receive Date: 20151014
  Receipt Date: 20160204
  Transmission Date: 20160525
  Serious: Yes (Death, Hospitalization)
  Sender: FDA-Public Use
  Company Number: JP-EISAI MEDICAL RESEARCH-EC-2015-011142

PATIENT
  Age: 49 Year
  Sex: Female
  Weight: 45 kg

DRUGS (8)
  1. LASIX [Concomitant]
     Active Substance: FUROSEMIDE
  2. ZOLENDRONIC ACID HYDRATE [Concomitant]
  3. OXYCONTIN [Concomitant]
     Active Substance: OXYCODONE HYDROCHLORIDE
  4. GOSHAJINKIGAN [Concomitant]
     Active Substance: HERBALS
  5. CYMBALTA [Concomitant]
     Active Substance: DULOXETINE HYDROCHLORIDE
  6. HALAVEN [Suspect]
     Active Substance: ERIBULIN MESYLATE
     Indication: BREAST CANCER METASTATIC
     Route: 041
     Dates: start: 20150114, end: 20150313
  7. LYRICA [Concomitant]
     Active Substance: PREGABALIN
  8. CELECOX [Concomitant]
     Active Substance: CELECOXIB

REACTIONS (3)
  - Decreased appetite [Recovering/Resolving]
  - Neutropenia [Recovered/Resolved]
  - Breast cancer [Fatal]

NARRATIVE: CASE EVENT DATE: 20150313
